FAERS Safety Report 7487783-1 (Version None)
Quarter: 2011Q2

REPORT INFORMATION
  Report Type: 
  Country: None (occurrence: None)
  Receive Date: 20110518
  Receipt Date: 20110512
  Transmission Date: 20111010
  Serious: Yes (Hospitalization)
  Sender: FDA-Public Use
  Company Number: US-BRISTOL-MYERS SQUIBB COMPANY-15425432

PATIENT
  Age: 47 Year
  Sex: Male

DRUGS (19)
  1. DOVONEX [Concomitant]
     Dosage: CREAM 120GRAMS.
     Route: 061
  2. PRILOSEC [Concomitant]
     Dosage: CAPSULE
     Route: 048
  3. FENTANYL-100 [Concomitant]
  4. LEVETIRACETAM [Concomitant]
     Dosage: TABLET
     Route: 048
  5. CITALOPRAM [Concomitant]
     Dosage: 30 TABLETS
     Route: 048
  6. FERROUS GLUCONATE [Concomitant]
     Dosage: TABLET,324 MG PO DAILY
     Route: 048
  7. VITAMIN D [Concomitant]
     Dosage: 1DF=2000 UNITS,TABS.
     Route: 048
  8. BETAMETHASONE DIPROPIONATE [Concomitant]
     Dosage: 0.05% OINTMENT
     Route: 061
  9. DESOWEN [Concomitant]
     Dosage: CREAM FOR 2 WEEKS.
     Route: 061
  10. FOLIC ACID [Concomitant]
     Dosage: MORNING
     Route: 048
  11. VITAMIN B COMPLEX CAP [Concomitant]
     Dosage: 1DF=1 TAB.
     Route: 048
  12. VIMPAT [Concomitant]
     Dosage: 50MG TABLET,60TABS
     Route: 048
  13. DILAUDID [Concomitant]
     Indication: PAIN
     Dosage: 1DF=2-4MG EVENRY 3 HRS AS NEEDED
  14. IPILIMUMAB [Suspect]
     Indication: MALIGNANT MELANOMA
     Dosage: NO. OF COURSES=4; 25FEB2011(253MG): RECEIVED 1ST DOSE OF RE-INDUCTION,LAST INDUCTION ON 27JUL10
     Route: 042
     Dates: start: 20100525
  15. ACETAMINOPHEN [Concomitant]
  16. LIDODERM [Concomitant]
  17. DEXAMETHASONE [Concomitant]
     Dosage: ALSO TAKEN 6MG,P.O.QHS.
     Route: 048
  18. OXYCODONE HCL [Concomitant]
     Indication: PAIN
     Dosage: EVERY 4 HOURS,80 TABLET
     Route: 048
  19. KEPPRA [Concomitant]

REACTIONS (7)
  - CONFUSIONAL STATE [None]
  - CENTRAL NERVOUS SYSTEM NECROSIS [None]
  - PYREXIA [None]
  - PAIN [None]
  - CONVULSION [None]
  - MOUTH HAEMORRHAGE [None]
  - MELAENA [None]
